FAERS Safety Report 25207485 (Version 2)
Quarter: 2025Q2

REPORT INFORMATION
  Report Type: Spontaneous
  Country: ZA (occurrence: ZA)
  Receive Date: 20250417
  Receipt Date: 20250423
  Transmission Date: 20250716
  Serious: Yes (Other)
  Sender: EMD SERONO INC
  Company Number: ZA-Merck Healthcare KGaA-2025017829

PATIENT
  Age: 76 Year
  Sex: Female

DRUGS (1)
  1. EUTHYROX [Suspect]
     Active Substance: LEVOTHYROXINE SODIUM
     Indication: Product used for unknown indication
     Dates: start: 20250219, end: 20250226

REACTIONS (6)
  - Neoplasm malignant [Recovered/Resolved]
  - Inflammation [Unknown]
  - Laboratory test abnormal [Unknown]
  - Renal function test abnormal [Unknown]
  - Liver function test abnormal [Unknown]
  - Illness [Recovered/Resolved]

NARRATIVE: CASE EVENT DATE: 20250223
